FAERS Safety Report 18318647 (Version 2)
Quarter: 2020Q3

REPORT INFORMATION
  Report Type: Spontaneous
  Country: US (occurrence: US)
  Receive Date: 20200928
  Receipt Date: 20200930
  Transmission Date: 20201103
  Serious: No
  Sender: FDA-Public Use
  Company Number: US-JNJFOC-20200940421

PATIENT
  Age: 55 Year
  Sex: Female
  Weight: 107.6 kg

DRUGS (1)
  1. SIMPONI ARIA [Suspect]
     Active Substance: GOLIMUMAB
     Indication: RHEUMATOID ARTHRITIS
     Route: 042

REACTIONS (4)
  - Product dose omission issue [Unknown]
  - Ligament sprain [Unknown]
  - Device malfunction [Unknown]
  - Speech disorder [Unknown]
